FAERS Safety Report 7168058-7 (Version None)
Quarter: 2010Q4

REPORT INFORMATION
  Report Type: 
  Country: None (occurrence: None)
  Receive Date: 20101216
  Receipt Date: 20101203
  Transmission Date: 20110411
  Serious: Yes (Hospitalization, Other)
  Sender: FDA-Public Use
  Company Number: PHHY2010CA78825

PATIENT
  Sex: Male

DRUGS (20)
  1. CLOZARIL [Suspect]
     Indication: SCHIZOPHRENIA, PARANOID TYPE
     Dosage: 400 MG, QHS
     Dates: start: 20100920
  2. CLOZARIL [Suspect]
     Indication: SCHIZOPHRENIA
     Dosage: 300 MG, QHS (3 TABLETS)
     Route: 048
  3. CLOZARIL [Suspect]
     Indication: DEPENDENCE
     Dosage: 75 MG, QHS
     Route: 048
  4. CLOZARIL [Suspect]
     Dosage: 400 MG, QHS
     Dates: start: 20101104
  5. COGENTIN [Concomitant]
     Indication: EXTRAPYRAMIDAL DISORDER
     Dosage: 2 MG, PRN
     Dates: start: 20100920
  6. COGENTIN [Concomitant]
     Indication: SALIVARY HYPERSECRETION
  7. HALDOL [Concomitant]
  8. FLUPENTIXOL [Concomitant]
     Dosage: 3 MG, UNK
  9. PANTOLOC [Concomitant]
  10. SEROQUEL [Concomitant]
     Dosage: UNK
  11. LORAZEPAM [Concomitant]
     Indication: AGITATION
     Dosage: 2 MG, PRN
     Dates: start: 20100803
  12. LORAZEPAM [Concomitant]
     Indication: ANXIETY
     Dosage: 1 MG, QID
     Route: 048
     Dates: start: 20100806
  13. LORAZEPAM [Concomitant]
     Dosage: 2 MG, PRN
     Route: 048
     Dates: start: 20100928
  14. ATROPINE [Concomitant]
     Dosage: 1 %, QHS 1-2 DROPS
     Dates: start: 20101021
  15. SODIUM CHLORIDE [Concomitant]
     Dosage: 0.9% 1-2 DROPS
  16. DOCUSATE SODIUM [Concomitant]
     Dosage: 100 MG, BID
     Route: 048
  17. SENOKOT [Concomitant]
     Dosage: 8.6 MG, BID
     Route: 048
  18. SODIUM BIPHOSPHATE [Concomitant]
  19. PANTOPRAZOLE [Concomitant]
     Dosage: 40 MG, QD
     Route: 048
     Dates: start: 20100926
  20. HYDROCORTISONE [Concomitant]
     Dosage: UNK
     Dates: start: 20101030

REACTIONS (6)
  - AGGRESSION [None]
  - DRUG ABUSE [None]
  - MENTAL DISORDER [None]
  - NEUTROPHIL COUNT DECREASED [None]
  - POISONING [None]
  - SCHIZOPHRENIA [None]
